FAERS Safety Report 13747850 (Version 1)
Quarter: 2017Q3

REPORT INFORMATION
  Report Type: Spontaneous
  Country: US (occurrence: US)
  Receive Date: 20170713
  Receipt Date: 20170713
  Transmission Date: 20171127
  Serious: No
  Sender: FDA-Public Use
  Company Number: US-B.I. PHARMACEUTICALS,INC./RIDGEFIELD-2017-BI-038165

PATIENT
  Age: 73 Year
  Sex: Female

DRUGS (6)
  1. LEVOTHYROXIN [Concomitant]
     Active Substance: LEVOTHYROXINE
     Indication: HYPOTHYROIDISM
     Dosage: QD;  FORM STRENGTH: 175MCG
     Route: 048
     Dates: start: 2012
  2. LOSARTAN/POTASSIUM/HYDROCHLOROTHIAZIDE [Concomitant]
     Indication: HYPERTENSION
     Dosage: QD;  FORM STRENGTH/ UNIT AND DAILY DOSE: 100MG/25MG
     Route: 048
     Dates: start: 2013
  3. METFORMIN HCL [Concomitant]
     Active Substance: METFORMIN HYDROCHLORIDE
     Indication: TYPE 2 DIABETES MELLITUS
     Dosage: BID;  FORM STRENGTH: 500MG
     Route: 048
     Dates: start: 201701
  4. ALLOPURINOL. [Concomitant]
     Active Substance: ALLOPURINOL
     Indication: GOUT
     Dosage: QD;  FORM STRENGTH: 300MG
     Route: 048
     Dates: start: 2007
  5. AMLODIPINE BESYLATE. [Concomitant]
     Active Substance: AMLODIPINE BESYLATE
     Indication: HYPERTENSION
     Dosage: QD;  FORM STRENGTH: 5MG
     Route: 048
     Dates: start: 2013
  6. GLYXAMBI [Suspect]
     Active Substance: EMPAGLIFLOZIN\LINAGLIPTIN
     Indication: TYPE 2 DIABETES MELLITUS
     Dosage: QD;  FORM STRENGTH/ UNIT AND DAILY DOSE: 10 MG/ 5 MG; FORMULATION: TABLET? ADMINISTRATION CORRECT? N
     Route: 048
     Dates: start: 20170630

REACTIONS (4)
  - Dizziness [Recovered/Resolved]
  - Abdominal pain upper [Recovered/Resolved]
  - Visual impairment [Recovered/Resolved]
  - Blood glucose increased [Not Recovered/Not Resolved]

NARRATIVE: CASE EVENT DATE: 20170705
